FAERS Safety Report 10728303 (Version 1)
Quarter: 2015Q1

REPORT INFORMATION
  Report Type: Spontaneous
  Country: US (occurrence: US)
  Receive Date: 20150121
  Receipt Date: 20150121
  Transmission Date: 20150721
  Serious: No
  Sender: FDA-Public Use
  Company Number: US-BRISTOL-MYERS SQUIBB COMPANY-BMS-2015-000746

PATIENT
  Sex: Male

DRUGS (4)
  1. KLONOPIN [Concomitant]
     Active Substance: CLONAZEPAM
  2. NARDIL [Concomitant]
     Active Substance: PHENELZINE SULFATE
  3. ABILIFY [Suspect]
     Active Substance: ARIPIPRAZOLE
     Indication: DEPRESSION
     Dosage: 1 MG, UNK
     Route: 048
  4. LOSARTAN [Concomitant]
     Active Substance: LOSARTAN

REACTIONS (5)
  - Dizziness [Unknown]
  - Heart rate increased [Unknown]
  - Blood glucose increased [Unknown]
  - Rash [Unknown]
  - Blood pressure increased [Unknown]
